FAERS Safety Report 6840972-9 (Version None)
Quarter: 2010Q3

REPORT INFORMATION
  Report Type: 
  Country: None (occurrence: None)
  Receive Date: 20100714
  Receipt Date: 20070622
  Transmission Date: 20110219
  Serious: No
  Sender: FDA-Public Use
  Company Number: US-PFIZER INC-2007052807

PATIENT
  Sex: Female
  Weight: 77.2 kg

DRUGS (5)
  1. CHANTIX [Suspect]
     Indication: SMOKING CESSATION THERAPY
     Dates: start: 20070101
  2. CYMBALTA [Suspect]
  3. TRAZODONE HYDROCHLORIDE [Concomitant]
  4. SPIRONOLACTONE [Concomitant]
  5. VERAPAMIL [Concomitant]

REACTIONS (4)
  - FATIGUE [None]
  - NAUSEA [None]
  - NERVOUSNESS [None]
  - TREMOR [None]
